FAERS Safety Report 7867927-X (Version None)
Quarter: 2011Q4

REPORT INFORMATION
  Report Type: 
  Country: None (occurrence: None)
  Receive Date: 20111028
  Receipt Date: 20111014
  Transmission Date: 20120403
  Serious: Yes (Other)
  Sender: FDA-Public Use
  Company Number: PHHY2011JP82708

PATIENT
  Age: 67 Year
  Sex: Male

DRUGS (3)
  1. CYCLOSPORINE [Suspect]
     Dosage: 200 MG, UNK
     Route: 048
     Dates: start: 20080701
  2. CYCLOSPORINE [Suspect]
     Indication: NEPHROTIC SYNDROME
     Dosage: 100 MG, DAILY
     Route: 048
     Dates: start: 20060201
  3. PREDNISOLONE [Concomitant]

REACTIONS (3)
  - NEUROMYOPATHY [None]
  - HEPATITIS B SURFACE ANTIGEN POSITIVE [None]
  - HEPATITIS B [None]
